FAERS Safety Report 8561393-7 (Version None)
Quarter: 2012Q3

REPORT INFORMATION
  Report Type: 
  Country: None (occurrence: None)
  Receive Date: 20120802
  Receipt Date: 20120724
  Transmission Date: 20120928
  Serious: Yes (Hospitalization)
  Sender: FDA-Public Use
  Company Number: US-GLAXOSMITHKLINE-A0913461A

PATIENT
  Age: 70 Year
  Sex: Male
  Weight: 104.1 kg

DRUGS (6)
  1. AVANDIA [Suspect]
     Indication: DIABETES MELLITUS
     Dosage: 4MG PER DAY
     Route: 048
     Dates: start: 20010701, end: 20040601
  2. PRINIVIL [Concomitant]
  3. HYDROCHLOROTHIAZIDE [Concomitant]
  4. PIOGLITAZONE [Concomitant]
  5. ZOCOR [Concomitant]
  6. METOPROLOL TARTRATE [Concomitant]

REACTIONS (8)
  - CARDIOVASCULAR DISORDER [None]
  - CARDIAC FAILURE CONGESTIVE [None]
  - MYOCARDIAL INFARCTION [None]
  - ATRIAL FIBRILLATION [None]
  - CARDIAC DISORDER [None]
  - SUBARACHNOID HAEMORRHAGE [None]
  - PLEURAL EFFUSION [None]
  - SUPRAVENTRICULAR TACHYCARDIA [None]
